FAERS Safety Report 15407779 (Version 1)
Quarter: 2018Q3

REPORT INFORMATION
  Report Type: Report from Study
  Country: US (occurrence: US)
  Receive Date: 20180920
  Receipt Date: 20180920
  Transmission Date: 20181010
  Serious: Yes (Other)
  Sender: FDA-Public Use
  Company Number: US-JNJFOC-20180921611

PATIENT
  Sex: Female

DRUGS (13)
  1. LIVALO [Concomitant]
     Active Substance: PITAVASTATIN CALCIUM
  2. IMBRUVICA [Suspect]
     Active Substance: IBRUTINIB
     Indication: CHRONIC LYMPHOCYTIC LEUKAEMIA
     Route: 048
     Dates: start: 20180412
  3. LOPRESSOR [Concomitant]
     Active Substance: METOPROLOL TARTRATE
  4. COQ10 [Concomitant]
     Active Substance: UBIDECARENONE
  5. NITROSTAT [Concomitant]
     Active Substance: NITROGLYCERIN
  6. IMBRUVICA [Concomitant]
     Active Substance: IBRUTINIB
     Indication: CHRONIC LYMPHOCYTIC LEUKAEMIA
     Route: 048
     Dates: start: 20171214
  7. VITAMIN B12 [Concomitant]
     Active Substance: CYANOCOBALAMIN
  8. ASPIRIN. [Concomitant]
     Active Substance: ASPIRIN
  9. KLONOPIN [Concomitant]
     Active Substance: CLONAZEPAM
  10. VITAMIN D [Concomitant]
     Active Substance: CHOLECALCIFEROL
  11. ALEVE [Concomitant]
     Active Substance: NAPROXEN SODIUM
  12. ASCORBIC ACID. [Concomitant]
     Active Substance: ASCORBIC ACID
  13. LOMOTIL [Concomitant]
     Active Substance: ATROPINE SULFATE\DIPHENOXYLATE HYDROCHLORIDE

REACTIONS (4)
  - Incorrect dose administered [Unknown]
  - Coeliac disease [Unknown]
  - Irritable bowel syndrome [Unknown]
  - Off label use [Unknown]
